FAERS Safety Report 11515128 (Version 1)
Quarter: 2015Q3

REPORT INFORMATION
  Report Type: Spontaneous
  Country: BE (occurrence: BE)
  Receive Date: 20150916
  Receipt Date: 20150916
  Transmission Date: 20151125
  Serious: Yes (Other)
  Sender: FDA-Public Use
  Company Number: PHHY2015BE109078

PATIENT
  Sex: Female

DRUGS (1)
  1. DESFERAL [Suspect]
     Active Substance: DEFEROXAMINE MESYLATE
     Indication: MYELODYSPLASTIC SYNDROME
     Route: 065

REACTIONS (1)
  - Nephropathy toxic [Unknown]
